FAERS Safety Report 6725595-4 (Version None)
Quarter: 2010Q2

REPORT INFORMATION
  Report Type: 
  Country: None (occurrence: None)
  Receive Date: 20100514
  Receipt Date: 20100503
  Transmission Date: 20101027
  Serious: Yes (Death)
  Sender: FDA-Public Use
  Company Number: CN-GENZYME-CLOF-1000942

PATIENT
  Age: 38 Year
  Sex: Male

DRUGS (1)
  1. CLOLAR [Suspect]
     Indication: ACUTE LYMPHOCYTIC LEUKAEMIA
     Dosage: UNK UNK, UNK
     Route: 065
     Dates: start: 20090201

REACTIONS (1)
  - GASTROINTESTINAL FUNGAL INFECTION [None]
